FAERS Safety Report 5624976-X (Version None)
Quarter: 2008Q1

REPORT INFORMATION
  Report Type: 
  Country: None (occurrence: None)
  Receive Date: 20080208
  Receipt Date: 20080102
  Transmission Date: 20080703
  Serious: Yes (Hospitalization)
  Sender: FDA-Public Use
  Company Number: VNL_00953_2008

PATIENT
  Sex: Female

DRUGS (4)
  1. APO-GO (APO-GO PFS 5 MG/ML SOLUTION FOR INFUSION IN PRE-FILLED SYRINGE [Suspect]
     Indication: PARKINSON'S DISEASE
     Dosage: (DF OVER 14 HOURS AND 17 MINUTES FROM 08:30H EACH DAY FOR 4 YEARS SUBCUTANEOUS
     Route: 058
     Dates: start: 20030101, end: 20071218
  2. APO-GO (APO-GO PEN 10 MG/ML - APOMORPHINE HYDROCHLORIDE) (NOT SPECIFIE [Suspect]
     Indication: PARKINSON'S DISEASE
     Dosage: (DF BOLUS INJECTIONS SUBCUTANEOUS)
     Route: 058
     Dates: start: 20030101, end: 20071218
  3. STALEVO 100 [Suspect]
     Indication: PARKINSON'S DISEASE
     Dosage: (150 G QID), 100 MG 5X/DAY)
     Dates: end: 20080104
  4. STALEVO 100 [Suspect]
     Indication: PARKINSON'S DISEASE
     Dosage: (150 G QID), 100 MG 5X/DAY)
     Dates: start: 20080104

REACTIONS (7)
  - DRUG EFFECT DECREASED [None]
  - HAEMOGLOBIN DECREASED [None]
  - MUSCLE RIGIDITY [None]
  - MUSCLE SPASMS [None]
  - NODULE [None]
  - OVERDOSE [None]
  - RED BLOOD CELL COUNT DECREASED [None]
